FAERS Safety Report 21730783 (Version 1)
Quarter: 2022Q4

REPORT INFORMATION
  Report Type: Report from Study
  Country: BR (occurrence: BR)
  Receive Date: 20221215
  Receipt Date: 20221215
  Transmission Date: 20230113
  Serious: Yes (Other)
  Sender: FDA-Public Use
  Company Number: BR-CELLTRION INC.-2022BR020931

PATIENT

DRUGS (5)
  1. INFLIXIMAB [Suspect]
     Active Substance: INFLIXIMAB
     Indication: Colitis ulcerative
     Dosage: 10 AMPOULES EVERY 8 WEEKS
     Route: 042
     Dates: start: 202211
  2. AZATHIOPRINE [Concomitant]
     Active Substance: AZATHIOPRINE
     Indication: Colitis
     Dosage: 2 PILLS A DAY (START: 1.5 YEARS AGO)
     Route: 048
  3. LORATADINE [Concomitant]
     Active Substance: LORATADINE
     Indication: Skin exfoliation
     Dosage: 1 PILL A DAY (START: 5 YEARS AGO)
     Route: 048
  4. HYDROXYZINE [Concomitant]
     Active Substance: HYDROXYZINE HYDROCHLORIDE
     Indication: Product used for unknown indication
     Dosage: 1 PILL A DAY (START: 5 YEARS AGO)
     Route: 048
  5. MINERAL OIL [Concomitant]
     Active Substance: MINERAL OIL
     Indication: Skin exfoliation
     Route: 061

REACTIONS (7)
  - Haematochezia [Unknown]
  - Skin exfoliation [Unknown]
  - Fatigue [Unknown]
  - Dizziness [Unknown]
  - Asthenia [Unknown]
  - Abdominal pain [Unknown]
  - Prescribed overdose [Unknown]
